FAERS Safety Report 8523474-3 (Version None)
Quarter: 2012Q3

REPORT INFORMATION
  Report Type: 
  Country: None (occurrence: None)
  Receive Date: 20120720
  Receipt Date: 20120710
  Transmission Date: 20120928
  Serious: Yes (Disabling)
  Sender: FDA-Public Use
  Company Number: US-PERRIGO-12US002639

PATIENT
  Sex: Male
  Weight: 90.703 kg

DRUGS (2)
  1. MICONAZOLE NITRATE [Suspect]
     Indication: TINEA PEDIS
     Dosage: AS DIRECTED, SINGLE
     Route: 061
     Dates: start: 20120319, end: 20120319
  2. ETODOLAC [Concomitant]
     Indication: BACK PAIN
     Dosage: UNK
     Route: 065
     Dates: start: 20111101

REACTIONS (4)
  - CHEMICAL INJURY [None]
  - SKIN EXFOLIATION [None]
  - ERYTHEMA [None]
  - PAIN [None]
